FAERS Safety Report 10539670 (Version 1)
Quarter: 2014Q4

REPORT INFORMATION
  Report Type: Spontaneous
  Country: US (occurrence: US)
  Receive Date: 20141024
  Receipt Date: 20141024
  Transmission Date: 20150529
  Serious: Yes (Other)
  Sender: FDA-Public Use
  Company Number: US-AMGEN-USASP2014080833

PATIENT
  Age: 39 Year
  Sex: Female

DRUGS (1)
  1. ENBREL [Suspect]
     Active Substance: ETANERCEPT
     Indication: RHEUMATOID ARTHRITIS
     Dosage: 50 MG, QWK
     Route: 065
     Dates: start: 2010, end: 20141005

REACTIONS (5)
  - Epistaxis [Recovered/Resolved]
  - Nasal ulcer [Recovered/Resolved]
  - Staphylococcal infection [Recovered/Resolved]
  - Bronchitis [Not Recovered/Not Resolved]
  - Nasal septum deviation [Recovered/Resolved]

NARRATIVE: CASE EVENT DATE: 201310
